FAERS Safety Report 4637037-3 (Version None)
Quarter: 2005Q2

REPORT INFORMATION
  Report Type: 
  Country: None (occurrence: None)
  Receive Date: 20050328
  Receipt Date: 20041202
  Transmission Date: 20051028
  Serious: No
  Sender: FDA-Public Use
  Company Number: USA041285162

PATIENT
  Age: 7 Year
  Sex: Male
  Weight: 21 kg

DRUGS (5)
  1. STRATTERA [Suspect]
     Indication: ATTENTION DEFICIT/HYPERACTIVITY DISORDER
     Dosage: 18 MG DAY
     Dates: start: 20041101
  2. CONCERTA [Concomitant]
  3. PULMICORT [Concomitant]
  4. PREVACID [Concomitant]
  5. XOPENEX [Concomitant]

REACTIONS (5)
  - AGGRESSION [None]
  - ERYTHEMA [None]
  - FATIGUE [None]
  - INSOMNIA [None]
  - PSYCHOMOTOR HYPERACTIVITY [None]
